FAERS Safety Report 14124121 (Version 1)
Quarter: 2017Q4

REPORT INFORMATION
  Report Type: Spontaneous
  Country: GB (occurrence: GB)
  Receive Date: 20171025
  Receipt Date: 20171025
  Transmission Date: 20180321
  Serious: Yes (Death)
  Sender: FDA-Public Use
  Company Number: GB-PFIZER INC-2017456048

PATIENT
  Age: 6 Decade
  Sex: Male

DRUGS (1)
  1. CRIZOTINIB [Suspect]
     Active Substance: CRIZOTINIB
     Dosage: UNK

REACTIONS (4)
  - Abnormal dreams [Unknown]
  - Neurological symptom [Unknown]
  - Dyskinesia [Unknown]
  - Death [Fatal]
